FAERS Safety Report 25535922 (Version 1)
Quarter: 2025Q3

REPORT INFORMATION
  Report Type: Report from Study
  Country: EU (occurrence: EU)
  Receive Date: 20250709
  Receipt Date: 20250709
  Transmission Date: 20251020
  Serious: Yes (Hospitalization)
  Sender: MYLAN
  Company Number: EU-002147023-NVSC2025ES084524

PATIENT
  Age: 35 Year
  Sex: Female
  Weight: 55 kg

DRUGS (24)
  1. MYCOPHENOLATE MOFETIL [Suspect]
     Active Substance: MYCOPHENOLATE MOFETIL
     Indication: Immunosuppressant drug therapy
     Dosage: 720 MILLIGRAM, BID
     Route: 065
     Dates: start: 20210525
  2. MYCOPHENOLATE MOFETIL [Suspect]
     Active Substance: MYCOPHENOLATE MOFETIL
     Dosage: 720 MILLIGRAM, BID
     Dates: start: 20210525
  3. MYCOPHENOLATE MOFETIL [Suspect]
     Active Substance: MYCOPHENOLATE MOFETIL
     Dosage: 720 MILLIGRAM, BID
     Dates: start: 20210525
  4. MYCOPHENOLATE MOFETIL [Suspect]
     Active Substance: MYCOPHENOLATE MOFETIL
     Dosage: 720 MILLIGRAM, BID
     Route: 065
     Dates: start: 20210525
  5. MYCOPHENOLATE MOFETIL [Suspect]
     Active Substance: MYCOPHENOLATE MOFETIL
     Dosage: 720 MILLIGRAM, BID
     Route: 065
     Dates: start: 20210527
  6. MYCOPHENOLATE MOFETIL [Suspect]
     Active Substance: MYCOPHENOLATE MOFETIL
     Dosage: 720 MILLIGRAM, BID
     Dates: start: 20210527
  7. MYCOPHENOLATE MOFETIL [Suspect]
     Active Substance: MYCOPHENOLATE MOFETIL
     Dosage: 720 MILLIGRAM, BID
     Dates: start: 20210527
  8. MYCOPHENOLATE MOFETIL [Suspect]
     Active Substance: MYCOPHENOLATE MOFETIL
     Dosage: 720 MILLIGRAM, BID
     Route: 065
     Dates: start: 20210527
  9. MYCOPHENOLATE MOFETIL [Suspect]
     Active Substance: MYCOPHENOLATE MOFETIL
     Dosage: 540 MILLIGRAM, BID
     Route: 065
     Dates: start: 20210604
  10. MYCOPHENOLATE MOFETIL [Suspect]
     Active Substance: MYCOPHENOLATE MOFETIL
     Dosage: 540 MILLIGRAM, BID
     Route: 065
     Dates: start: 20210604
  11. MYCOPHENOLATE MOFETIL [Suspect]
     Active Substance: MYCOPHENOLATE MOFETIL
     Dosage: 540 MILLIGRAM, BID
     Dates: start: 20210604
  12. MYCOPHENOLATE MOFETIL [Suspect]
     Active Substance: MYCOPHENOLATE MOFETIL
     Dosage: 540 MILLIGRAM, BID
     Dates: start: 20210604
  13. IPTACOPAN [Suspect]
     Active Substance: IPTACOPAN
     Indication: C3 glomerulopathy
     Dosage: 200 MILLIGRAM, BID
     Dates: start: 20241125
  14. IPTACOPAN [Suspect]
     Active Substance: IPTACOPAN
     Dosage: 200 MILLIGRAM, BID
     Route: 048
     Dates: start: 20241125
  15. IPTACOPAN [Suspect]
     Active Substance: IPTACOPAN
     Dosage: 200 MILLIGRAM, BID
     Route: 048
     Dates: start: 20241125
  16. IPTACOPAN [Suspect]
     Active Substance: IPTACOPAN
     Dosage: 200 MILLIGRAM, BID
     Dates: start: 20241125
  17. TACROLIMUS [Concomitant]
     Active Substance: TACROLIMUS
     Indication: Immunosuppressant drug therapy
     Dosage: 6 MILLIGRAM, QD
     Dates: start: 20210525
  18. TACROLIMUS [Concomitant]
     Active Substance: TACROLIMUS
     Dosage: 6 MILLIGRAM, QD
     Route: 065
     Dates: start: 20210525
  19. TACROLIMUS [Concomitant]
     Active Substance: TACROLIMUS
     Dosage: 6 MILLIGRAM, QD
     Route: 065
     Dates: start: 20210525
  20. TACROLIMUS [Concomitant]
     Active Substance: TACROLIMUS
     Dosage: 6 MILLIGRAM, QD
     Dates: start: 20210525
  21. PENICILLIN G [Concomitant]
     Active Substance: PENICILLIN G
     Indication: Prophylaxis
  22. PENICILLIN G [Concomitant]
     Active Substance: PENICILLIN G
     Route: 065
  23. PENICILLIN G [Concomitant]
     Active Substance: PENICILLIN G
     Route: 065
  24. PENICILLIN G [Concomitant]
     Active Substance: PENICILLIN G

REACTIONS (15)
  - Pneumocystis jirovecii pneumonia [Recovered/Resolved]
  - Cough [Unknown]
  - Pyrexia [Recovered/Resolved]
  - Dyspnoea [Unknown]
  - Base excess decreased [Unknown]
  - Glomerular filtration rate decreased [Unknown]
  - Blood sodium decreased [Unknown]
  - Blood bicarbonate decreased [Unknown]
  - Blood calcium increased [Unknown]
  - C-reactive protein increased [Unknown]
  - Procalcitonin increased [Unknown]
  - Blood urea increased [Unknown]
  - Blood creatinine increased [Unknown]
  - Blood glucose increased [Unknown]
  - Blood lactate dehydrogenase increased [Unknown]

NARRATIVE: CASE EVENT DATE: 20241031
